FAERS Safety Report 5332320-0 (Version None)
Quarter: 2007Q2

REPORT INFORMATION
  Report Type: 
  Country: None (occurrence: None)
  Receive Date: 20070523
  Receipt Date: 20070521
  Transmission Date: 20071010
  Serious: Yes (Other)
  Sender: FDA-Public Use
  Company Number: A0354699A

PATIENT
  Age: 34 Year
  Sex: Female

DRUGS (3)
  1. PAXIL [Suspect]
     Indication: ANXIETY
     Dosage: 20MG PER DAY
     Route: 048
     Dates: start: 19960101, end: 20020101
  2. PAROXETINE HYDROCHLORIDE [Suspect]
     Indication: PANIC DISORDER
     Dosage: 20MG PER DAY
     Route: 048
     Dates: start: 20020101, end: 20061101
  3. XANAX [Concomitant]

REACTIONS (17)
  - ADVERSE EVENT [None]
  - ANXIETY [None]
  - BLEPHAROSPASM [None]
  - DEJA VU [None]
  - DIZZINESS [None]
  - DIZZINESS POSTURAL [None]
  - DRUG EXPOSURE DURING PREGNANCY [None]
  - DRUG INEFFECTIVE [None]
  - DRUG WITHDRAWAL SYNDROME [None]
  - HALLUCINATION [None]
  - LIBIDO INCREASED [None]
  - MUSCLE TWITCHING [None]
  - NAUSEA [None]
  - NORMAL NEWBORN [None]
  - PARAESTHESIA [None]
  - PREGNANCY [None]
  - UTERINE CONTRACTIONS ABNORMAL [None]
